FAERS Safety Report 22146689 (Version 2)
Quarter: 2023Q2

REPORT INFORMATION
  Report Type: Report from Study
  Country: US (occurrence: US)
  Receive Date: 20230328
  Receipt Date: 20230506
  Transmission Date: 20230722
  Serious: Yes (Other)
  Sender: FDA-Public Use
  Company Number: US-ABBVIE-4284842

PATIENT
  Age: 73 Year
  Sex: Female

DRUGS (1)
  1. SKYRIZI [Suspect]
     Active Substance: RISANKIZUMAB-RZAA
     Indication: Crohn^s disease
     Route: 058
     Dates: start: 20221115

REACTIONS (7)
  - Colonic abscess [Not Recovered/Not Resolved]
  - Large intestinal stenosis [Not Recovered/Not Resolved]
  - Fatigue [Recovered/Resolved]
  - Crohn^s disease [Unknown]
  - Nausea [Not Recovered/Not Resolved]
  - Dyschezia [Unknown]
  - Colonic fistula [Unknown]

NARRATIVE: CASE EVENT DATE: 20221115
